FAERS Safety Report 18859998 (Version 1)
Quarter: 2021Q1

REPORT INFORMATION
  Report Type: Spontaneous
  Country: US (occurrence: US)
  Receive Date: 20210208
  Receipt Date: 20210208
  Transmission Date: 20210420
  Serious: No
  Sender: FDA-Public Use
  Company Number: US-JNJFOC-20210146604

PATIENT
  Age: 41 Year
  Sex: Female
  Weight: 99.79 kg

DRUGS (5)
  1. MOTRIN [Suspect]
     Active Substance: IBUPROFEN
     Indication: CHILLS
  2. MOTRIN [Suspect]
     Active Substance: IBUPROFEN
     Indication: PAIN
  3. MOTRIN [Suspect]
     Active Substance: IBUPROFEN
     Indication: MYALGIA
  4. MOTRIN [Suspect]
     Active Substance: IBUPROFEN
     Indication: PYREXIA
     Route: 065
     Dates: start: 20210110
  5. MOTRIN [Suspect]
     Active Substance: IBUPROFEN
     Indication: ARTHRALGIA

REACTIONS (2)
  - Incorrect dose administered [Unknown]
  - Product use in unapproved indication [Unknown]

NARRATIVE: CASE EVENT DATE: 20210110
